FAERS Safety Report 9726384 (Version 3)
Quarter: 2014Q1

REPORT INFORMATION
  Report Type: Spontaneous
  Country: BE (occurrence: BE)
  Receive Date: 20131203
  Receipt Date: 20140120
  Transmission Date: 20141002
  Serious: Yes (Hospitalization)
  Sender: FDA-Public Use
  Company Number: BE-JNJFOC-20131117976

PATIENT
  Age: 46 Year
  Sex: Male

DRUGS (10)
  1. XARELTO [Suspect]
     Indication: CEREBROVASCULAR ACCIDENT PROPHYLAXIS
     Route: 048
     Dates: start: 20130909
  2. XARELTO [Suspect]
     Indication: CEREBROVASCULAR ACCIDENT PROPHYLAXIS
     Route: 048
     Dates: start: 20130902, end: 20130908
  3. XARELTO [Suspect]
     Indication: ATRIAL FIBRILLATION
     Route: 048
     Dates: start: 20130909
  4. XARELTO [Suspect]
     Indication: ATRIAL FIBRILLATION
     Route: 048
     Dates: start: 20130902, end: 20130908
  5. SIPRALEXA [Concomitant]
     Dosage: ON THE MORNING
     Route: 065
  6. GLUCOPHAGE [Concomitant]
     Indication: DIABETES MELLITUS
     Route: 065
  7. LIPITOR [Concomitant]
     Dosage: ON THE MORNING
     Route: 065
  8. EMCONCOR [Concomitant]
     Route: 065
  9. PANTOPRAZOLE [Concomitant]
     Dosage: ON THE MORNING
     Route: 065
  10. TAMBOCOR [Concomitant]
     Dosage: ON THE MORNING
     Route: 065

REACTIONS (7)
  - Haemorrhagic transformation stroke [Unknown]
  - Haemorrhagic transformation stroke [Unknown]
  - Headache [Recovered/Resolved]
  - Hypoaesthesia [Unknown]
  - Hemianopia [Not Recovered/Not Resolved]
  - Epilepsy [Unknown]
  - Paraesthesia [Unknown]
